FAERS Safety Report 22167545 (Version 2)
Quarter: 2024Q1

REPORT INFORMATION
  Report Type: Spontaneous
  Country: US (occurrence: US)
  Receive Date: 20230403
  Receipt Date: 20240117
  Transmission Date: 20240410
  Serious: No
  Sender: FDA-Public Use
  Company Number: US-SA-SAC20230330001210

PATIENT
  Sex: Female

DRUGS (5)
  1. DUPIXENT [Suspect]
     Active Substance: DUPILUMAB
     Indication: Dermatitis allergic
     Dosage: 300 MG, QOW
     Route: 058
     Dates: start: 20211009
  2. GENGRAF [Concomitant]
     Active Substance: CYCLOSPORINE
     Dosage: UNK
  3. PROTONIX [Concomitant]
     Active Substance: PANTOPRAZOLE SODIUM
     Dosage: UNK
  4. SINGULAIR [Concomitant]
     Active Substance: MONTELUKAST SODIUM
     Dosage: UNK
  5. TACROLIMUS [Concomitant]
     Active Substance: TACROLIMUS
     Dosage: UNK

REACTIONS (11)
  - Dermatitis allergic [Unknown]
  - Condition aggravated [Unknown]
  - Discomfort [Not Recovered/Not Resolved]
  - Stress [Unknown]
  - Product dose omission issue [Unknown]
  - Sleep disorder due to a general medical condition [Unknown]
  - Oropharyngeal pain [Unknown]
  - Oral herpes [Unknown]
  - Eye irritation [Unknown]
  - Rash [Not Recovered/Not Resolved]
  - Product dose omission in error [Unknown]
